FAERS Safety Report 6714411-2 (Version None)
Quarter: 2010Q2

REPORT INFORMATION
  Report Type: 
  Country: None (occurrence: None)
  Receive Date: 20100506
  Receipt Date: 20100427
  Transmission Date: 20101027
  Serious: Yes (Death, Hospitalization)
  Sender: FDA-Public Use
  Company Number: US-AMGEN-QUU407000

PATIENT
  Sex: Female

DRUGS (2)
  1. ENBREL [Suspect]
     Indication: RHEUMATOID ARTHRITIS
     Dates: start: 20000501, end: 20060101
  2. HUMIRA [Concomitant]
     Dates: start: 20060101, end: 20100407

REACTIONS (6)
  - BRONCHITIS [None]
  - COMA [None]
  - INFECTION [None]
  - PNEUMONIA [None]
  - SYNCOPE [None]
  - UPPER RESPIRATORY TRACT CONGESTION [None]
